FAERS Safety Report 8955209 (Version 1)
Quarter: 2012Q4

REPORT INFORMATION
  Report Type: 
  Country: AU (occurrence: AU)
  Receive Date: 20121207
  Receipt Date: 20121207
  Transmission Date: 20130627
  Serious: Yes (Other)
  Sender: FDA-Public Use
  Company Number: AU-ROCHE-1165670

PATIENT
  Age: 46 Year
  Sex: Female

DRUGS (6)
  1. HERCEPTIN [Suspect]
     Indication: PRODUCT USED FOR UNKNOWN INDICATION
     Route: 065
  2. XELODA [Suspect]
     Route: 065
  3. EPIRUBICIN [Concomitant]
     Dosage: 3 cycles
     Route: 065
  4. CYCLOPHOSPHAMIDE [Concomitant]
     Dosage: 3 cycles
     Route: 065
  5. DOCETAXEL [Concomitant]
     Dosage: 3 cycles
     Route: 065
  6. LAPATINIB [Concomitant]
     Dosage: 3 cycles
     Route: 065

REACTIONS (1)
  - Disease progression [Unknown]
